FAERS Safety Report 17558874 (Version 1)
Quarter: 2020Q1

REPORT INFORMATION
  Report Type: Spontaneous
  Country: DK (occurrence: DK)
  Receive Date: 20200319
  Receipt Date: 20200319
  Transmission Date: 20200409
  Serious: Yes (Hospitalization, Other)
  Sender: FDA-Public Use
  Company Number: DK-ALK-ABELLO A/S-2019AA004434

PATIENT

DRUGS (4)
  1. CORODIL                            /00574901/ [Concomitant]
     Indication: HYPERTENSION
     Dosage: 15 MG
  2. SYMBICORT [Concomitant]
     Active Substance: BUDESONIDE\FORMOTEROL FUMARATE DIHYDRATE
     Indication: ASTHMA
     Dosage: 160/4.5 MG
  3. BRICANYL                           /00199202/ [Concomitant]
     Route: 055
  4. GRAZAX [Suspect]
     Active Substance: PHLEUM PRATENSE POLLEN
     Indication: PRODUCT USED FOR UNKNOWN INDICATION
     Dosage: 75000 SQ-T, QD
     Route: 060
     Dates: start: 20190219, end: 20191218

REACTIONS (5)
  - Pruritus [Not Recovered/Not Resolved]
  - Disease complication [Unknown]
  - Erythema [Not Recovered/Not Resolved]
  - Hot flush [Not Recovered/Not Resolved]
  - Kidney infection [Unknown]
